FAERS Safety Report 6492876-1 (Version None)
Quarter: 2009Q4

REPORT INFORMATION
  Report Type: 
  Country: None (occurrence: None)
  Receive Date: 20091214
  Receipt Date: 20091211
  Transmission Date: 20100525
  Serious: Yes (Other)
  Sender: FDA-Public Use
  Company Number: FR-WYE-G05125909

PATIENT
  Age: 56 Year
  Sex: Female

DRUGS (1)
  1. RHINADVIL [Suspect]
     Indication: NASAL CONGESTION
     Dosage: 1 TO 4 TABLETS TOTAL DAILY
     Route: 048
     Dates: start: 20091201, end: 20091201

REACTIONS (2)
  - HYPERSENSITIVITY [None]
  - TONGUE OEDEMA [None]
